FAERS Safety Report 9123366 (Version 1)
Quarter: 2013Q1

REPORT INFORMATION
  Report Type: Spontaneous
  Country: US (occurrence: US)
  Receive Date: 20130227
  Receipt Date: 20130227
  Transmission Date: 20140127
  Serious: No
  Sender: FDA-Public Use
  Company Number: US-PFIZER INC-2013044096

PATIENT
  Sex: Female

DRUGS (2)
  1. CHANTIX [Suspect]
     Dosage: 0.5 MG, UNK
  2. CHANTIX [Suspect]
     Dosage: 1 MG, UNK

REACTIONS (7)
  - Irritability [Unknown]
  - Depressed mood [Unknown]
  - Anxiety [Unknown]
  - Insomnia [Unknown]
  - Hyperphagia [Unknown]
  - Irritable bowel syndrome [Unknown]
  - Migraine [Unknown]
